FAERS Safety Report 17926213 (Version 2)
Quarter: 2020Q3

REPORT INFORMATION
  Report Type: Spontaneous
  Country: US (occurrence: US)
  Receive Date: 20200622
  Receipt Date: 20200930
  Transmission Date: 20201103
  Serious: Yes (Other)
  Sender: FDA-Public Use
  Company Number: US-PFIZER INC-2020239420

PATIENT
  Age: 50 Year
  Sex: Female

DRUGS (3)
  1. VITAMIN D [Concomitant]
     Active Substance: VITAMIN D NOS
     Dosage: UNK (VITAMIN D?400 UNIT TABLET)
  2. XELJANZ XR [Suspect]
     Active Substance: TOFACITINIB CITRATE
     Indication: RHEUMATOID ARTHRITIS
     Dosage: 11 MG, DAILY
     Route: 048
     Dates: start: 201905
  3. IRON [Concomitant]
     Active Substance: IRON
     Dosage: UNK (IRON 159(45)MG TABLET ER)

REACTIONS (3)
  - Rheumatoid arthritis [Unknown]
  - Rhinorrhoea [Not Recovered/Not Resolved]
  - Inflammation [Unknown]
